FAERS Safety Report 18797772 (Version 20)
Quarter: 2022Q4

REPORT INFORMATION
  Report Type: Report from Study
  Country: JP (occurrence: JP)
  Receive Date: 20210128
  Receipt Date: 20221103
  Transmission Date: 20230113
  Serious: Yes (Hospitalization, Other)
  Sender: FDA-Public Use
  Company Number: JP-BRISTOL-MYERS SQUIBB COMPANY-BMS-2021-002763

PATIENT
  Age: 69 Year
  Sex: Male
  Weight: 70.3 kg

DRUGS (49)
  1. IPILIMUMAB [Suspect]
     Active Substance: IPILIMUMAB
     Indication: Non-small cell lung cancer
     Route: 041
     Dates: start: 20201209, end: 20201209
  2. IPILIMUMAB [Suspect]
     Active Substance: IPILIMUMAB
     Route: 041
     Dates: start: 20210303, end: 20210303
  3. IPILIMUMAB [Suspect]
     Active Substance: IPILIMUMAB
     Route: 041
     Dates: start: 20210512, end: 20210512
  4. IPILIMUMAB [Suspect]
     Active Substance: IPILIMUMAB
     Route: 041
     Dates: start: 20210623, end: 20210623
  5. IPILIMUMAB [Suspect]
     Active Substance: IPILIMUMAB
     Route: 041
     Dates: start: 20210804, end: 20210804
  6. IPILIMUMAB [Suspect]
     Active Substance: IPILIMUMAB
     Route: 041
     Dates: start: 20210915, end: 20210915
  7. IPILIMUMAB [Suspect]
     Active Substance: IPILIMUMAB
     Route: 041
     Dates: start: 20211117, end: 20211117
  8. IPILIMUMAB [Suspect]
     Active Substance: IPILIMUMAB
     Route: 041
     Dates: start: 20220112, end: 20220112
  9. NIVOLUMAB [Suspect]
     Active Substance: NIVOLUMAB
     Indication: Non-small cell lung cancer
     Route: 041
     Dates: start: 20201209, end: 20201209
  10. NIVOLUMAB [Suspect]
     Active Substance: NIVOLUMAB
     Route: 041
     Dates: start: 20210115, end: 20210115
  11. NIVOLUMAB [Suspect]
     Active Substance: NIVOLUMAB
     Route: 041
     Dates: start: 20210303, end: 20210303
  12. NIVOLUMAB [Suspect]
     Active Substance: NIVOLUMAB
     Route: 041
     Dates: start: 20210512, end: 20210512
  13. NIVOLUMAB [Suspect]
     Active Substance: NIVOLUMAB
     Route: 041
     Dates: start: 20210602, end: 20210602
  14. NIVOLUMAB [Suspect]
     Active Substance: NIVOLUMAB
     Route: 041
     Dates: start: 20210623, end: 20210623
  15. NIVOLUMAB [Suspect]
     Active Substance: NIVOLUMAB
     Route: 041
     Dates: start: 20210714, end: 20210714
  16. NIVOLUMAB [Suspect]
     Active Substance: NIVOLUMAB
     Route: 041
     Dates: start: 20210804, end: 20210804
  17. NIVOLUMAB [Suspect]
     Active Substance: NIVOLUMAB
     Route: 041
     Dates: start: 20210825, end: 20210825
  18. NIVOLUMAB [Suspect]
     Active Substance: NIVOLUMAB
     Route: 041
     Dates: start: 20210915, end: 20210915
  19. NIVOLUMAB [Suspect]
     Active Substance: NIVOLUMAB
     Route: 041
     Dates: start: 20211006, end: 20211006
  20. NIVOLUMAB [Suspect]
     Active Substance: NIVOLUMAB
     Route: 041
     Dates: start: 20211117, end: 20211117
  21. NIVOLUMAB [Suspect]
     Active Substance: NIVOLUMAB
     Route: 041
     Dates: start: 20211215, end: 20211215
  22. NIVOLUMAB [Suspect]
     Active Substance: NIVOLUMAB
     Route: 041
     Dates: start: 20220112, end: 20220112
  23. ELIQUIS [Suspect]
     Active Substance: APIXABAN
     Indication: Deep vein thrombosis
     Route: 048
     Dates: start: 20201208, end: 20201220
  24. ELIQUIS [Suspect]
     Active Substance: APIXABAN
     Route: 048
     Dates: start: 20201229
  25. CARBOPLATIN [Suspect]
     Active Substance: CARBOPLATIN
     Indication: Non-small cell lung cancer recurrent
     Dosage: UNKNOWN, ONE TIME DOSE
     Route: 065
     Dates: start: 20201209, end: 20201209
  26. CARBOPLATIN [Suspect]
     Active Substance: CARBOPLATIN
     Dosage: 480 MILLIGRAM, ONE TIME DOSE
     Route: 065
     Dates: start: 20210115, end: 20210115
  27. ALIMTA [Suspect]
     Active Substance: PEMETREXED DISODIUM
     Indication: Non-small cell lung cancer recurrent
     Dosage: UNKNOWN, ONE TIME DOSE
     Route: 065
     Dates: start: 20201209, end: 20201209
  28. ALIMTA [Suspect]
     Active Substance: PEMETREXED DISODIUM
     Dosage: 648 MILLIGRAM, ONE TIME DOSE
     Route: 065
     Dates: start: 20210115, end: 20210115
  29. NEXIUM [Concomitant]
     Active Substance: ESOMEPRAZOLE MAGNESIUM
     Indication: Prophylaxis
     Dosage: 20 MG, EVERYDAY AFTER BREAKFAST
     Route: 048
     Dates: start: 20201209, end: 20201220
  30. TRAMCET [Concomitant]
     Active Substance: ACETAMINOPHEN\TRAMADOL
     Indication: Adenocarcinoma
     Dosage: 1 DF, Q6H AFTER EVERY MEAL, BEFORE BEDTIME
     Route: 048
     Dates: start: 20201208, end: 20201225
  31. LOXOPROFEN SODIUM [Concomitant]
     Active Substance: LOXOPROFEN SODIUM
     Indication: Lung adenocarcinoma
     Dosage: 60 MG, Q8H EVERY 8 HOURS(6:00AM/2:00PM/10:00PM) AND IN TIMES OF PAIN
     Route: 048
     Dates: start: 20201208, end: 20201222
  32. LYRICA [Concomitant]
     Active Substance: PREGABALIN
     Indication: Lung adenocarcinoma
     Dosage: 25 MG, Q8H AFTER EVERY MEAL
     Route: 048
     Dates: start: 20201208, end: 20201221
  33. MAGLAX [MAGNESIUM OXIDE] [Concomitant]
     Indication: Product used for unknown indication
     Dosage: 500 MG, Q8H AFTER EVERY MEAL
     Route: 048
     Dates: start: 20201212, end: 20201223
  34. HEPARINOID [Concomitant]
     Indication: Prophylaxis
     Dosage: APPROPRIATE AMOUNT APPLICATION,SEVERAL TIMES A DAY,AFFECTED AREA,WHEN ITCHING,THE ITCHY SPOT
     Route: 065
     Dates: start: 20201208, end: 20201208
  35. HEPARINOID [Concomitant]
     Dosage: APPROPRIATE AMOUNT APPLICATION,SEVERAL TIMES A DAY,AFFECTED AREA,WHEN ITCHING,THE ITCHY SPOT
     Route: 065
     Dates: start: 20201220, end: 20201220
  36. HEPARINOID [Concomitant]
     Dosage: APPROPRIATE AMOUNT APPLICATION,SEVERAL TIMES A DAY,AFFECTED AREA,WHEN ITCHING,THE ITCHY SPOT
     Route: 065
     Dates: start: 20201227, end: 20201227
  37. NAUZELIN [Concomitant]
     Active Substance: DOMPERIDONE
     Indication: Product used for unknown indication
     Dosage: 10 MG, Q8H BEFORE EVERY MEAL,SELF-AJUSTABLE
     Route: 048
     Dates: start: 20201216, end: 20201220
  38. PETROLATUM [Concomitant]
     Active Substance: PETROLATUM
     Indication: Product used for unknown indication
     Dosage: APPROPRIATE AMOUNT APPLICATION,SEVERAL TIMES A DAY,AFFECTED AREA
     Route: 061
     Dates: start: 20201218, end: 20201218
  39. LAFUTIDINE [Concomitant]
     Active Substance: LAFUTIDINE
     Indication: Prophylaxis
     Dosage: 10 MG, EVERYDAY  AFTER BREAKFAST
     Route: 048
     Dates: start: 20201221, end: 20201225
  40. EDOXABAN TOSYLATE [Concomitant]
     Active Substance: EDOXABAN TOSYLATE
     Indication: Product used for unknown indication
     Dosage: 30 MG, EVERYDAY AFTER SUPPER
     Route: 048
     Dates: start: 20201221, end: 20201228
  41. VITAMINS [Concomitant]
     Active Substance: VITAMINS
     Indication: Prophylaxis
     Dosage: 1 DF, EVERYDAY, AFTER BREAKFAST
     Route: 048
     Dates: start: 20201209, end: 20201229
  42. CALCIUM CARBONATE\CHOLECALCIFEROL\MAGNESIUM CARBONATE [Concomitant]
     Active Substance: CALCIUM CARBONATE\CHOLECALCIFEROL\MAGNESIUM CARBONATE
     Indication: Prophylaxis
     Dosage: 2 DF, EVERYDAY
     Route: 048
     Dates: start: 20201209, end: 20201229
  43. OXYCODONE HYDROCHLORIDE [Concomitant]
     Active Substance: OXYCODONE HYDROCHLORIDE
     Indication: Lung adenocarcinoma
     Dosage: IN TIMES OF PAIN
     Route: 065
     Dates: start: 20201217, end: 20201218
  44. OXYCODONE HYDROCHLORIDE [Concomitant]
     Active Substance: OXYCODONE HYDROCHLORIDE
     Dosage: IN TIMES OF PAIN
     Route: 065
     Dates: start: 20201221, end: 20201223
  45. SEROQUEL [Concomitant]
     Active Substance: QUETIAPINE FUMARATE
     Indication: Restlessness
     Dosage: 25 MG, PRN TIME REQUIRED,INDEFINITE
     Route: 048
  46. TRAMADOL [Concomitant]
     Active Substance: TRAMADOL
     Indication: Pain
     Dosage: 25 MG, PRN IN TIMES OF PAIN
     Route: 048
     Dates: start: 20201229, end: 20201229
  47. GLYCOSAMINOGLYCANS [Concomitant]
     Active Substance: GLYCOSAMINOGLYCANS
     Indication: Prophylaxis
     Dosage: ADEQUATE DOSE, A FEW TIMES A DAY
     Route: 061
     Dates: start: 20201208
  48. GLYCOSAMINOGLYCANS [Concomitant]
     Active Substance: GLYCOSAMINOGLYCANS
     Indication: Pruritus
     Dosage: UNK UNK, PRN
     Route: 061
     Dates: start: 20201220
  49. OXYCODONE HYDROCHLORIDE [Concomitant]
     Active Substance: OXYCODONE HYDROCHLORIDE
     Indication: Pain
     Dosage: 2.5 MILLIGRAM, PRN
     Route: 048

REACTIONS (10)
  - Febrile neutropenia [Recovered/Resolved]
  - Thrombocytopenia [Recovered/Resolved]
  - Neutrophil count decreased [Recovered/Resolved]
  - White blood cell count decreased [Recovered/Resolved]
  - Pneumothorax [Recovered/Resolved]
  - Pneumonia [Not Recovered/Not Resolved]
  - Rash [Recovering/Resolving]
  - Epistaxis [Recovered/Resolved]
  - Blood creatinine increased [Recovered/Resolved]
  - Pruritus [Not Recovered/Not Resolved]

NARRATIVE: CASE EVENT DATE: 20201214
